FAERS Safety Report 6078552-8 (Version None)
Quarter: 2009Q1

REPORT INFORMATION
  Report Type: 
  Country: None (occurrence: None)
  Receive Date: 20090212
  Receipt Date: 20090130
  Transmission Date: 20090719
  Serious: Yes (Hospitalization)
  Sender: FDA-Public Use
  Company Number: CIP09000304

PATIENT
  Age: 74 Year
  Sex: Female

DRUGS (6)
  1. ACTONEL [Suspect]
     Dosage: 35 MG ONCE WEEKLY, ORAL
     Route: 048
     Dates: start: 20050601, end: 20070801
  2. FOSAMAX [Suspect]
     Indication: OSTEOPOROSIS
     Dosage: 70 MG ONCE WEEKLY, ORAL
     Route: 048
     Dates: start: 20030101, end: 20050601
  3. BONIVA (BANDRONATE SODIUM) [Suspect]
     Indication: OSTEOPOROSIS
     Dosage: 150 MG ONCE MONTHLY, ORAL
     Route: 048
     Dates: start: 20070801
  4. CALCIMAGON-D 3 (ALCIUM CARBONATE, COLECALCIFEROL) [Concomitant]
  5. SERETIDE (FLUTICASONE PROPIONATE, SALMETEROL XINAFOATE) INHALER [Concomitant]
  6. HERBAL PREPARATION [Concomitant]

REACTIONS (4)
  - BONE DISORDER [None]
  - FALL [None]
  - FEMUR FRACTURE [None]
  - PATHOLOGICAL FRACTURE [None]
